FAERS Safety Report 9455252 (Version 2)
Quarter: 2013Q3

REPORT INFORMATION
  Report Type: Spontaneous
  Country: US (occurrence: US)
  Receive Date: 20130813
  Receipt Date: 20130911
  Transmission Date: 20140515
  Serious: Yes (Other)
  Sender: FDA-Public Use
  Company Number: US-JNJFOC-20130705440

PATIENT
  Age: 67 Year
  Sex: Female
  Weight: 77.57 kg

DRUGS (3)
  1. REMICADE [Suspect]
     Indication: RHEUMATOID ARTHRITIS
     Route: 042
     Dates: start: 20130507
  2. REMICADE [Suspect]
     Indication: RHEUMATOID ARTHRITIS
     Dosage: TOTAL 4 INFUSIONS WERE RECEIVED BY THE PATIENT.
     Route: 042
     Dates: start: 20130703, end: 20130703
  3. ZYRTEC [Concomitant]
     Indication: PREMEDICATION
     Route: 048

REACTIONS (5)
  - Infusion related reaction [Recovered/Resolved]
  - Throat tightness [Recovered/Resolved]
  - Palpitations [Recovered/Resolved]
  - Bronchospasm [Recovered/Resolved]
  - Dyspnoea [Recovered/Resolved]
